FAERS Safety Report 24213778 (Version 1)
Quarter: 2024Q3

REPORT INFORMATION
  Report Type: Spontaneous
  Country: US (occurrence: None)
  Receive Date: 20240814
  Receipt Date: 20240814
  Transmission Date: 20241017
  Serious: Yes (Other)
  Sender: Public
  Company Number: None

PATIENT
  Age: 41 Year
  Sex: Female
  Weight: 58.5 kg

DRUGS (1)
  1. XEOMIN [Suspect]
     Active Substance: INCOBOTULINUMTOXINA
     Indication: Skin cosmetic procedure
     Dosage: OTHER STRENGTH : UNSURE;? ?1 INJECTION ONCE INTRAMUSCULAR
     Route: 030
     Dates: start: 20240224, end: 20240224

REACTIONS (5)
  - Musculoskeletal stiffness [None]
  - Dysphagia [None]
  - Muscle tightness [None]
  - Jaw disorder [None]
  - Muscle disorder [None]

NARRATIVE: CASE EVENT DATE: 20240224
